FAERS Safety Report 26108904 (Version 1)
Quarter: 2025Q4

REPORT INFORMATION
  Report Type: Spontaneous
  Country: US (occurrence: None)
  Receive Date: 20251201
  Receipt Date: 20251201
  Transmission Date: 20260118
  Serious: No
  Sender: FDA-CTU
  Company Number: None

PATIENT
  Age: 17 Year
  Sex: Female

DRUGS (5)
  1. ADBRY [Suspect]
     Active Substance: TRALOKINUMAB-LDRM
     Indication: Dermatitis atopic
     Route: 058
     Dates: start: 20241217
  2. ADBRY [Suspect]
     Active Substance: TRALOKINUMAB-LDRM
     Indication: Eczema
  3. MULTIVITAMIN TABLETS [Concomitant]
  4. VITAMIN C 1000MG TABLETS [Concomitant]
  5. VITAMIN D 1,000IU H/PTNCY CAPSULES [Concomitant]

REACTIONS (2)
  - Dermatitis atopic [None]
  - Therapeutic product effect decreased [None]

NARRATIVE: CASE EVENT DATE: 20251121
